FAERS Safety Report 9282376 (Version 1)
Quarter: 2013Q2

REPORT INFORMATION
  Report Type: Spontaneous
  Country: US (occurrence: US)
  Receive Date: 20130510
  Receipt Date: 20130510
  Transmission Date: 20140414
  Serious: No
  Sender: FDA-Public Use
  Company Number: US-BAYER-2013-057042

PATIENT
  Sex: Female

DRUGS (11)
  1. BETASERON [Suspect]
     Dosage: UNK
  2. BETASERON [Suspect]
     Dosage: 0.3 MG, QOD
     Route: 058
     Dates: start: 20130118
  3. ATORVASTATIN [Concomitant]
     Dosage: 10 MG, UNK
  4. ALEVE CAPLET [Concomitant]
     Dosage: 220 MG, UNK
  5. LEVOTHYROXIN [Concomitant]
     Dosage: 50 ?G, UNK
  6. GABAPENTIN [Concomitant]
     Dosage: 100 MG, UNK
  7. AMLODIPINE BESYLATE W/BENAZEPRIL HYDROCHLOR. [Concomitant]
     Dosage: 2.5-10 MG, UNK
  8. BACLOFEN [Concomitant]
     Dosage: 10 MG, UNK
  9. LISINOPRIL [Concomitant]
     Dosage: 20 MG, UNK
  10. METFORMIN [Concomitant]
     Dosage: 500 MG, UNK
  11. VITAMIN D [Concomitant]
     Dosage: 50000 U, UNK

REACTIONS (1)
  - Drug ineffective [None]
